FAERS Safety Report 16956991 (Version 1)
Quarter: 2019Q4

REPORT INFORMATION
  Report Type: Report from Study
  Country: US (occurrence: US)
  Receive Date: 20191024
  Receipt Date: 20191024
  Transmission Date: 20200122
  Serious: Yes (Hospitalization)
  Sender: FDA-Public Use
  Company Number: US-EISAI MEDICAL RESEARCH-EC-2019-056029

PATIENT
  Age: 71 Year
  Sex: Male
  Weight: 60.9 kg

DRUGS (15)
  1. NORCO [Concomitant]
     Active Substance: ACETAMINOPHEN\HYDROCODONE BITARTRATE
  2. HYDROCODONE-ACETAMINOPHEN [Concomitant]
     Active Substance: ACETAMINOPHEN\HYDROCODONE
  3. TAMSULOSIN [Concomitant]
     Active Substance: TAMSULOSIN
  4. METFORMIN [Concomitant]
     Active Substance: METFORMIN HYDROCHLORIDE
  5. ZOLPIDEM [Concomitant]
     Active Substance: ZOLPIDEM TARTRATE
  6. CENTRUM COMPLETE [Concomitant]
  7. METRONIDAZOLE. [Concomitant]
     Active Substance: METRONIDAZOLE
  8. LENVIMA [Suspect]
     Active Substance: LENVATINIB
     Indication: HEPATOCELLULAR CARCINOMA
     Route: 048
     Dates: start: 20190318, end: 2019
  9. LENVIMA [Suspect]
     Active Substance: LENVATINIB
     Route: 048
     Dates: start: 2019, end: 201910
  10. TRAZODONE [Concomitant]
     Active Substance: TRAZODONE HYDROCHLORIDE
  11. CIPROFLOXACIN. [Concomitant]
     Active Substance: CIPROFLOXACIN
  12. NITROFURANTOIN. [Concomitant]
     Active Substance: NITROFURANTOIN
  13. TRAMADOL. [Concomitant]
     Active Substance: TRAMADOL
  14. GLIMEPIRIDE. [Concomitant]
     Active Substance: GLIMEPIRIDE
  15. MYRBETRIQ [Concomitant]
     Active Substance: MIRABEGRON

REACTIONS (9)
  - Weight decreased [Unknown]
  - Inappropriate schedule of product administration [Unknown]
  - Irritability [Unknown]
  - Dysphagia [Unknown]
  - Oral mucosal blistering [Unknown]
  - Dysphonia [Unknown]
  - Diarrhoea [Unknown]
  - Pain in extremity [Unknown]
  - Oropharyngeal pain [Unknown]

NARRATIVE: CASE EVENT DATE: 2019
